FAERS Safety Report 18215310 (Version 2)
Quarter: 2020Q4

REPORT INFORMATION
  Report Type: Spontaneous
  Country: US (occurrence: US)
  Receive Date: 20200831
  Receipt Date: 20201030
  Transmission Date: 20210113
  Serious: Yes (Hospitalization, Disabling, Other)
  Sender: FDA-Public Use
  Company Number: US-PURDUE-USA-2020-0163919

PATIENT
  Sex: Male

DRUGS (6)
  1. DILAUDID [Suspect]
     Active Substance: HYDROMORPHONE HYDROCHLORIDE
     Indication: JOINT DISLOCATION
     Dosage: UNKNOWN
     Route: 048
  2. HEROIN [Suspect]
     Active Substance: DIAMORPHINE
     Indication: PRODUCT USED FOR UNKNOWN INDICATION
     Dosage: UNK
     Route: 065
  3. VICODIN [Suspect]
     Active Substance: ACETAMINOPHEN\HYDROCODONE BITARTRATE
     Indication: JOINT DISLOCATION
     Dosage: UNKNOWN
     Route: 048
  4. TRAMADOL. [Suspect]
     Active Substance: TRAMADOL
     Indication: JOINT DISLOCATION
     Dosage: UNKNOWN
     Route: 048
  5. OXYCODONE/ ACETAMINOPHEN TABLETS [Suspect]
     Active Substance: ACETAMINOPHEN\OXYCODONE HYDROCHLORIDE
     Indication: JOINT DISLOCATION
     Dosage: UNKNOWN
     Route: 048
  6. HYDROCODONE BITARTRATE AND ACETAMINOPHEN [Suspect]
     Active Substance: ACETAMINOPHEN\HYDROCODONE BITARTRATE
     Indication: JOINT DISLOCATION
     Dosage: UNKNOWN
     Route: 048

REACTIONS (10)
  - Impaired work ability [Unknown]
  - Overdose [Unknown]
  - Drug abuse [Unknown]
  - Drug dependence [Unknown]
  - Rehabilitation therapy [Unknown]
  - Depression [Unknown]
  - Drug detoxification [Unknown]
  - Injury [Unknown]
  - Suicide attempt [Unknown]
  - Accident at work [Unknown]
